FAERS Safety Report 16440222 (Version 2)
Quarter: 2022Q4

REPORT INFORMATION
  Report Type: Spontaneous
  Country: US (occurrence: US)
  Receive Date: 20190617
  Receipt Date: 20221004
  Transmission Date: 20230113
  Serious: Yes (Hospitalization, Other)
  Sender: FDA-Public Use
  Company Number: US-VERTEX PHARMACEUTICALS-2019-005458

PATIENT
  Sex: Male
  Weight: 33 kg

DRUGS (5)
  1. KALYDECO [Suspect]
     Active Substance: IVACAFTOR
     Indication: Cystic fibrosis
     Dosage: 150 MG, BID
     Route: 048
     Dates: start: 20130930, end: 20160412
  2. LEVOTHYROXINE [Concomitant]
     Active Substance: LEVOTHYROXINE
     Dosage: 112MCG
  3. ZENPEP [Concomitant]
     Active Substance: PANCRELIPASE AMYLASE\PANCRELIPASE LIPASE\PANCRELIPASE PROTEASE
     Dosage: UNK
  4. VITAMIN D3 [Concomitant]
     Active Substance: CHOLECALCIFEROL
     Dosage: 5000 UNITS
  5. PULMOZYME [Concomitant]
     Active Substance: DORNASE ALFA
     Dosage: 1MG

REACTIONS (4)
  - Rhabdomyosarcoma [Recovering/Resolving]
  - Metastases to lymph nodes [Recovering/Resolving]
  - Pneumonia pseudomonal [Unknown]
  - Illness [Unknown]

NARRATIVE: CASE EVENT DATE: 20160101
